FAERS Safety Report 7860405-3 (Version None)
Quarter: 2011Q4

REPORT INFORMATION
  Report Type: 
  Country: None (occurrence: None)
  Receive Date: 20111027
  Receipt Date: 20111017
  Transmission Date: 20120403
  Serious: Yes (Other)
  Sender: FDA-Public Use
  Company Number: PHFR2011IE01803

PATIENT
  Sex: Female

DRUGS (8)
  1. CLONAZEPAM [Concomitant]
     Dosage: 1 MG/DAY
     Route: 048
  2. CLOZARIL [Suspect]
     Indication: PSYCHOTIC DISORDER
     Route: 048
     Dates: start: 19960213
  3. RANITIDINE [Concomitant]
     Dosage: 150 MG, BID
  4. ZOPICLONE [Concomitant]
     Dosage: 7.5 MG/DAY
     Route: 048
  5. TOLTERODINE TARTRATE [Concomitant]
     Dosage: 2 MG, BID
     Route: 048
  6. HYOSCINE [Concomitant]
     Dosage: 300 MG, BID
  7. CLOZARIL [Suspect]
     Indication: SCHIZOPHRENIA
     Route: 048
     Dates: start: 20010701
  8. CLOZARIL [Suspect]
     Dosage: 525 MG
     Route: 048

REACTIONS (4)
  - HYPERCHOLESTEROLAEMIA [None]
  - WHITE BLOOD CELL COUNT INCREASED [None]
  - RESPIRATORY TRACT INFECTION [None]
  - NEUTROPHILIA [None]
